FAERS Safety Report 6448492-0 (Version None)
Quarter: 2009Q4

REPORT INFORMATION
  Report Type: 
  Country: None (occurrence: None)
  Receive Date: 20091120
  Receipt Date: 20091110
  Transmission Date: 20100525
  Serious: Yes (Hospitalization)
  Sender: FDA-Public Use
  Company Number: US-AMGEN-QUU373983

PATIENT
  Sex: Male

DRUGS (3)
  1. ENBREL [Suspect]
     Indication: RHEUMATOID ARTHRITIS
     Route: 058
  2. METHOTREXATE [Concomitant]
  3. POTASSIUM CHLORIDE [Concomitant]

REACTIONS (10)
  - ACNE [None]
  - ARTHRALGIA [None]
  - FALL [None]
  - HEART RATE IRREGULAR [None]
  - HYPERHIDROSIS [None]
  - JOINT STIFFNESS [None]
  - MUSCLE SPASMS [None]
  - RHEUMATOID ARTHRITIS [None]
  - TOOTH FRACTURE [None]
  - WEIGHT INCREASED [None]
